FAERS Safety Report 7708431-9 (Version None)
Quarter: 2011Q3

REPORT INFORMATION
  Report Type: 
  Country: None (occurrence: None)
  Receive Date: 20110825
  Receipt Date: 20110815
  Transmission Date: 20111222
  Serious: Yes (Other)
  Sender: FDA-Public Use
  Company Number: US-BAYER-201041588NA

PATIENT
  Age: 24 Year
  Sex: Female
  Weight: 52.154 kg

DRUGS (4)
  1. YASMIN [Suspect]
     Dosage: UNK UNK, UNK
     Route: 048
     Dates: start: 20020501, end: 20030801
  2. YASMIN [Suspect]
     Dosage: UNK
     Dates: start: 20060101, end: 20060101
  3. YAZ [Suspect]
     Dosage: UNK
     Dates: start: 20060101, end: 20060101
  4. YAZ [Suspect]
     Dosage: UNK UNK, UNK
     Route: 048
     Dates: start: 20020501, end: 20030801

REACTIONS (2)
  - GALLBLADDER INJURY [None]
  - CHOLELITHIASIS [None]
